FAERS Safety Report 9384877 (Version 1)
Quarter: 2013Q3

REPORT INFORMATION
  Report Type: Spontaneous
  Country: US (occurrence: US)
  Receive Date: 20130705
  Receipt Date: 20130705
  Transmission Date: 20140515
  Serious: Yes (Hospitalization)
  Sender: FDA-Public Use
  Company Number: US-ELI_LILLY_AND_COMPANY-US201306009377

PATIENT
  Sex: Female

DRUGS (11)
  1. HUMALOG LISPRO [Suspect]
     Indication: DIABETES MELLITUS
     Dosage: UNK UNK, TID
  2. HUMALOG LISPRO [Suspect]
     Dosage: UNK, PRN
  3. LANTUS [Concomitant]
     Dosage: 60 U, EACH MORNING
  4. PRISTIQ [Concomitant]
     Dosage: UNK, QD
  5. ABILIFY [Concomitant]
     Dosage: 4 MG, QD
  6. ATENOLOL [Concomitant]
     Dosage: 50 MG, BID
  7. LISINOPRIL [Concomitant]
     Dosage: 10 MG, BID
  8. LISINOPRIL [Concomitant]
     Dosage: 10 MG, QD
  9. PRILOSEC [Concomitant]
     Dosage: UNK, QD
  10. ASPIRIN [Concomitant]
     Dosage: 81 MG, QD
  11. ATORVASTATIN [Concomitant]
     Dosage: 80 MG, QD

REACTIONS (3)
  - Dyspnoea [Recovering/Resolving]
  - Sleep apnoea syndrome [Not Recovered/Not Resolved]
  - Drug dose omission [Unknown]
